FAERS Safety Report 5102011-X (Version None)
Quarter: 2006Q3

REPORT INFORMATION
  Report Type: 
  Country: None (occurrence: None)
  Receive Date: 20060731
  Receipt Date: 20060731
  Transmission Date: 20061208
  Serious: No
  Sender: FDA-Public Use
  Company Number: 2006PV014594

PATIENT
  Age: 52 Year
  Sex: Female
  Weight: 92.5338 kg

DRUGS (2)
  1. BYETTA [Suspect]
     Indication: DIABETES MELLITUS NON-INSULIN-DEPENDENT
     Dosage: 5 MCG;BID;SC
     Route: 058
     Dates: start: 20060527
  2. PRANDIN [Concomitant]

REACTIONS (6)
  - ABNORMAL DREAMS [None]
  - DECREASED APPETITE [None]
  - DRUG EFFECT DECREASED [None]
  - INJECTION SITE URTICARIA [None]
  - SCREAMING [None]
  - STRESS [None]
